FAERS Safety Report 20824376 (Version 1)
Quarter: 2022Q2

REPORT INFORMATION
  Report Type: Spontaneous
  Country: US (occurrence: US)
  Receive Date: 20220513
  Receipt Date: 20220513
  Transmission Date: 20220721
  Serious: No
  Sender: FDA-Public Use
  Company Number: US-CELGENE-USA-20220303206

PATIENT
  Sex: Male
  Weight: 103 kg

DRUGS (1)
  1. POMALYST [Suspect]
     Active Substance: POMALIDOMIDE
     Indication: Plasma cell myeloma
     Dosage: 4 MILLIGRAM
     Route: 048
     Dates: start: 202107

REACTIONS (4)
  - Sinusitis [Unknown]
  - Weight increased [Unknown]
  - Fatigue [Unknown]
  - Peripheral swelling [Unknown]
